FAERS Safety Report 4643527-X (Version None)
Quarter: 2005Q2

REPORT INFORMATION
  Report Type: 
  Country: None (occurrence: None)
  Receive Date: 20050425
  Receipt Date: 20050413
  Transmission Date: 20051028
  Serious: Yes (Disabling, Other)
  Sender: FDA-Public Use
  Company Number: US-JNJFOC-20040902548

PATIENT
  Sex: Male
  Weight: 132.45 kg

DRUGS (31)
  1. REMICADE [Suspect]
     Route: 042
  2. REMICADE [Suspect]
     Indication: CROHN'S DISEASE
     Route: 042
  3. AVINZA [Concomitant]
  4. HYDROCHLOROTHIAZIDE [Concomitant]
  5. PENTASA [Concomitant]
  6. EFFEXAR XR [Concomitant]
  7. CLONAZEPAM [Concomitant]
  8. VIOXX [Concomitant]
  9. NEXIUM [Concomitant]
  10. NEURONTIN [Concomitant]
  11. HYDROCORTISONE [Concomitant]
  12. AMARYL [Concomitant]
  13. M.V.I. [Concomitant]
  14. M.V.I. [Concomitant]
  15. M.V.I. [Concomitant]
  16. M.V.I. [Concomitant]
  17. M.V.I. [Concomitant]
  18. M.V.I. [Concomitant]
  19. M.V.I. [Concomitant]
  20. M.V.I. [Concomitant]
  21. DIOVAN [Concomitant]
  22. COUMADIN [Concomitant]
  23. LIPITOR [Concomitant]
  24. ZETIA [Concomitant]
  25. ULTRACET [Concomitant]
     Indication: THERAPEUTIC RESPONSE DECREASED
  26. ZONEGRAN [Concomitant]
  27. TRAZADONE [Concomitant]
  28. SEROQUEL [Concomitant]
  29. METHOTREXATE [Concomitant]
  30. LEUCOVORIN CALCIUM [Concomitant]
  31. B12 [Concomitant]

REACTIONS (5)
  - ABSCESS [None]
  - DIFFICULTY IN WALKING [None]
  - NEUROPATHY [None]
  - OEDEMA PERIPHERAL [None]
  - SLEEP APNOEA SYNDROME [None]
